FAERS Safety Report 5968164-6 (Version None)
Quarter: 2008Q4

REPORT INFORMATION
  Report Type: 
  Country: None (occurrence: None)
  Receive Date: 20081122
  Receipt Date: 20081122
  Transmission Date: 20090506
  Serious: Yes (Hospitalization)
  Sender: FDA-Public Use
  Company Number: None

PATIENT
  Sex: Male
  Weight: 78.8 kg

DRUGS (1)
  1. CISPLATIN [Suspect]
     Dosage: 199 MG
     Dates: end: 20080819

REACTIONS (3)
  - FEBRILE NEUTROPENIA [None]
  - RENAL FAILURE ACUTE [None]
  - RENAL TUBULAR NECROSIS [None]
